FAERS Safety Report 13113437 (Version 1)
Quarter: 2017Q1

REPORT INFORMATION
  Report Type: Spontaneous
  Country: AU (occurrence: AU)
  Receive Date: 20170113
  Receipt Date: 20170113
  Transmission Date: 20170428
  Serious: Yes (Hospitalization, Other)
  Sender: FDA-Public Use
  Company Number: AU-MYLANLABS-2017M1001119

PATIENT

DRUGS (2)
  1. FENTANYL. [Suspect]
     Active Substance: FENTANYL
     Indication: HOLLOW VISCERAL MYOPATHY
     Route: 042
  2. TRAMADOL. [Suspect]
     Active Substance: TRAMADOL
     Indication: HOLLOW VISCERAL MYOPATHY
     Dosage: ONCE A DAY
     Route: 048

REACTIONS (2)
  - Hypoglycaemia [Recovered/Resolved]
  - Adrenal insufficiency [Recovered/Resolved]
